FAERS Safety Report 4912921-1 (Version None)
Quarter: 2006Q1

REPORT INFORMATION
  Report Type: 
  Country: None (occurrence: None)
  Receive Date: 20060215
  Receipt Date: 20051031
  Transmission Date: 20060701
  Serious: Yes (Hospitalization)
  Sender: FDA-Public Use
  Company Number: JP-BRISTOL-MYERS SQUIBB COMPANY-13173968

PATIENT
  Age: 86 Year
  Sex: Male

DRUGS (7)
  1. GATIFLOXACIN [Suspect]
     Indication: PHARYNGITIS
     Route: 048
     Dates: start: 20030127, end: 20030129
  2. LOXONIN [Concomitant]
     Indication: PYREXIA
     Route: 048
     Dates: start: 20030127, end: 20030129
  3. CELESTAMINE TAB [Concomitant]
     Dosage: DOSAGE FORM-TABLETS
     Route: 048
     Dates: start: 20030127, end: 20030129
  4. RESPLEN [Concomitant]
     Dosage: DOSAGE FORM-TABLETS
     Route: 048
     Dates: start: 20030127, end: 20030129
  5. MERISLON [Concomitant]
     Dosage: DOSAGE FORM-TABLETS
     Route: 048
     Dates: start: 20011026, end: 20030129
  6. CARNACULIN [Concomitant]
     Dosage: DOSAGE FORM-TABLETS
     Route: 048
     Dates: start: 20011026, end: 20030129
  7. JUVELA N [Concomitant]
     Route: 048
     Dates: start: 20011026, end: 20030129

REACTIONS (4)
  - ANOREXIA [None]
  - FALL [None]
  - MUSCULAR WEAKNESS [None]
  - SYNCOPE [None]
